FAERS Safety Report 8043505-7 (Version None)
Quarter: 2012Q1

REPORT INFORMATION
  Report Type: 
  Country: None (occurrence: None)
  Receive Date: 20120112
  Receipt Date: 20120106
  Transmission Date: 20120608
  Serious: Yes (Hospitalization)
  Sender: FDA-Public Use
  Company Number: JP-BAYER-2011-123218

PATIENT
  Sex: Male

DRUGS (4)
  1. MEXILETINE HYDROCHLORIDE [Concomitant]
     Route: 065
  2. OLMESARTAN MEDOXOMIL [Concomitant]
     Route: 048
  3. ADALAT [Suspect]
     Dosage: UNK
     Route: 048
  4. ASPIRIN [Suspect]
     Dosage: UNK
     Route: 048

REACTIONS (2)
  - DRUG ERUPTION [None]
  - HEPATIC FUNCTION ABNORMAL [None]
